FAERS Safety Report 7801692-7 (Version None)
Quarter: 2011Q4

REPORT INFORMATION
  Report Type: 
  Country: None (occurrence: None)
  Receive Date: 20111007
  Receipt Date: 20110926
  Transmission Date: 20120403
  Serious: Yes (Hospitalization, Other)
  Sender: FDA-Public Use
  Company Number: US-ELI_LILLY_AND_COMPANY-US201105008691

PATIENT
  Sex: Female

DRUGS (2)
  1. FORTEO [Suspect]
     Indication: OSTEOPOROSIS
     Dosage: 20 UG, QD
     Dates: start: 20110101
  2. OXYGEN [Concomitant]
     Dosage: UNK, QD

REACTIONS (4)
  - MYOCARDIAL INFARCTION [None]
  - MYALGIA [None]
  - ARTHRALGIA [None]
  - CONTUSION [None]
